FAERS Safety Report 4986270-X (Version None)
Quarter: 2006Q2

REPORT INFORMATION
  Report Type: 
  Country: None (occurrence: None)
  Receive Date: 20060428
  Receipt Date: 20060307
  Transmission Date: 20061013
  Serious: Yes (Hospitalization, Disabling, Other)
  Sender: FDA-Public Use
  Company Number: US-MERCK-0603USA01363

PATIENT
  Age: 38 Year
  Sex: Male
  Weight: 143 kg

DRUGS (2)
  1. VIOXX [Suspect]
     Indication: TENDON RUPTURE
     Route: 048
     Dates: start: 20040427, end: 20040524
  2. IBUPROFEN [Concomitant]
     Route: 065

REACTIONS (8)
  - CEREBROVASCULAR ACCIDENT [None]
  - ISCHAEMIA [None]
  - MYOCARDIAL INFARCTION [None]
  - ORGAN FAILURE [None]
  - PULMONARY EMBOLISM [None]
  - RECTAL HAEMORRHAGE [None]
  - RETINAL DETACHMENT [None]
  - THROMBOSIS [None]
